FAERS Safety Report 8370316-5 (Version None)
Quarter: 2012Q2

REPORT INFORMATION
  Report Type: 
  Country: None (occurrence: None)
  Receive Date: 20120518
  Receipt Date: 20111007
  Transmission Date: 20120825
  Serious: No
  Sender: FDA-Public Use
  Company Number: US-ASTRAZENECA-2011SE69613

PATIENT
  Age: 56 Year
  Sex: Female

DRUGS (1)
  1. PRILOSEC OTC [Suspect]
     Dosage: 1 TABLET, 1-2 TIMES A DAY FOR 14 DAYS
     Route: 048
     Dates: start: 20110923, end: 20111007

REACTIONS (4)
  - DRUG INEFFECTIVE [None]
  - PRODUCT TASTE ABNORMAL [None]
  - ABDOMINAL DISCOMFORT [None]
  - NAUSEA [None]
